FAERS Safety Report 23841468 (Version 3)
Quarter: 2024Q2

REPORT INFORMATION
  Report Type: Spontaneous
  Country: US (occurrence: US)
  Receive Date: 20240510
  Receipt Date: 20240510
  Transmission Date: 20240716
  Serious: No
  Sender: FDA-Public Use
  Company Number: US-ABBVIE-5750673

PATIENT
  Sex: Female

DRUGS (1)
  1. ARMOUR THYROID [Suspect]
     Active Substance: THYROID, PORCINE
     Indication: Hypothyroidism
     Dosage: 15 MG, FORM STRENGTH: 1 GRAM
     Route: 048

REACTIONS (4)
  - Tetanus [Unknown]
  - Tinnitus [Not Recovered/Not Resolved]
  - Parosmia [Unknown]
  - Hyposmia [Unknown]
